FAERS Safety Report 9522520 (Version 1)
Quarter: 2013Q1

REPORT INFORMATION
  Report Type: Spontaneous
  Country: US (occurrence: None)
  Receive Date: 20130305
  Receipt Date: 20130305
  Transmission Date: 20140127
  Serious: Yes (Hospitalization)
  Sender: FDA-Public Use
  Company Number: 163-21880-12012325

PATIENT
  Age: 77 Year
  Sex: Male
  Weight: 90.72 kg

DRUGS (9)
  1. REVLIMID [Suspect]
     Indication: MYELODYSPLASTIC SYNDROME
     Route: 048
     Dates: start: 2006, end: 20120111
  2. IMDUR (ISOSORBIDE MONONITRATE) [Concomitant]
  3. FUROSEMIDE (FUROSEMIDE) [Concomitant]
  4. PLAVIX (CLOPIDOGREL) [Concomitant]
  5. METOPRODOL (METOPRODOL) [Concomitant]
  6. ALLOPURINOL [Concomitant]
  7. CALCITRIOL (CALCITRIOL) [Concomitant]
  8. KLOR-CON (POTASSIUM CHLORIDE) [Concomitant]
  9. SIMVASTATIN (SIMVASTATIN) [Concomitant]

REACTIONS (3)
  - Anaemia [None]
  - Wound [None]
  - Drug ineffective [None]
